FAERS Safety Report 16200387 (Version 1)
Quarter: 2019Q2

REPORT INFORMATION
  Report Type: Spontaneous
  Country: US (occurrence: US)
  Receive Date: 20190416
  Receipt Date: 20190416
  Transmission Date: 20190711
  Serious: No
  Sender: FDA-Public Use
  Company Number: US-BIOGEN-2017BI00495822

PATIENT
  Sex: Male

DRUGS (1)
  1. PLEGRIDY [Suspect]
     Active Substance: PEGINTERFERON BETA-1A
     Indication: MULTIPLE SCLEROSIS
     Route: 050
     Dates: start: 20170313, end: 20180307

REACTIONS (4)
  - Blood test abnormal [Unknown]
  - Feeling abnormal [Recovered/Resolved]
  - Influenza like illness [Unknown]
  - Multiple sclerosis [Unknown]
